FAERS Safety Report 21383628 (Version 1)
Quarter: 2022Q3

REPORT INFORMATION
  Report Type: Spontaneous
  Country: JP (occurrence: JP)
  Receive Date: 20220927
  Receipt Date: 20220927
  Transmission Date: 20221027
  Serious: Yes (Hospitalization, Other)
  Sender: FDA-Public Use
  Company Number: JP-ALVOGEN-2022-ALVOGEN-120913

PATIENT
  Age: 34 Year
  Sex: Female

DRUGS (2)
  1. DEXAMETHASONE [Suspect]
     Active Substance: DEXAMETHASONE
     Indication: COVID-19 pneumonia
     Route: 048
  2. REMDESIVIR [Suspect]
     Active Substance: REMDESIVIR
     Indication: COVID-19 pneumonia
     Route: 042

REACTIONS (6)
  - Acute myocardial infarction [Unknown]
  - Renal infarct [Unknown]
  - Ischaemic stroke [Unknown]
  - Staphylococcal sepsis [Unknown]
  - Endocarditis [Unknown]
  - Mitral valve incompetence [Unknown]
